FAERS Safety Report 4322519-4 (Version None)
Quarter: 2004Q1

REPORT INFORMATION
  Report Type: 
  Country: None (occurrence: None)
  Receive Date: 20040323
  Receipt Date: 20040323
  Transmission Date: 20041129
  Serious: Yes (Death)
  Sender: FDA-Public Use
  Company Number: None

PATIENT
  Age: 56 Year
  Sex: Male
  Weight: 80.7403 kg

DRUGS (2)
  1. LEXAPRO [Suspect]
     Dosage: UNKNOWN
     Dates: start: 20031101, end: 20040207
  2. XANAX [Suspect]
     Dosage: UNKNOWN WHEN NEEDE
     Dates: start: 20040108, end: 20040207

REACTIONS (2)
  - COMPLETED SUICIDE [None]
  - DEPRESSION [None]
